FAERS Safety Report 16296336 (Version 1)
Quarter: 2019Q2

REPORT INFORMATION
  Report Type: Spontaneous
  Country: US (occurrence: US)
  Receive Date: 20190509
  Receipt Date: 20190509
  Transmission Date: 20190711
  Serious: Yes (Other)
  Sender: FDA-Public Use
  Company Number: None

PATIENT
  Age: 37 Year
  Sex: Female
  Weight: 127.35 kg

DRUGS (18)
  1. ?CARBAMAZEPINE 200MG [Concomitant]
  2. AJOVY [Suspect]
     Active Substance: FREMANEZUMAB-VFRM
     Indication: MIGRAINE
     Dosage: ?          QUANTITY:1 INJECTION(S);OTHER FREQUENCY:MONTHLY;?
     Route: 058
     Dates: start: 20190220, end: 20190508
  3. ?GABAPENTIN 600MG [Concomitant]
  4. ?METOPROLOL ER SUCCINATE 50MG [Concomitant]
  5. ?DEPAKOTE 500MG [Concomitant]
  6. ?MIRENA [Concomitant]
  7. ?PHILLIPS COLON HEALTH [Concomitant]
  8. ?VIT D3 5,000MG [Concomitant]
  9. MULTI VITAMINS ? [Concomitant]
  10. ?ZYRTEC DAILY [Concomitant]
  11. ?KEPPRA 100MG [Concomitant]
  12. ?PRISTIQ ER 100MG [Concomitant]
  13. ?OMEGA 3 8000 MG [Concomitant]
  14. ?OCREVUS IV 300MG [Concomitant]
  15. ?MAGNESIUM 400MG [Concomitant]
  16. ?AJOVY INJECTION 225MG/1.5ML [Concomitant]
  17. ?BUPROPION 150MG [Concomitant]
  18. ?RANITIDINE 300MG [Concomitant]

REACTIONS (1)
  - Nausea [None]

NARRATIVE: CASE EVENT DATE: 20190220
